FAERS Safety Report 6613110-5 (Version None)
Quarter: 2010Q1

REPORT INFORMATION
  Report Type: 
  Country: None (occurrence: None)
  Receive Date: 20100223
  Receipt Date: 20100211
  Transmission Date: 20100710
  Serious: Yes (Death)
  Sender: FDA-Public Use
  Company Number: JHP201000061

PATIENT
  Age: 22 Day
  Sex: Male

DRUGS (5)
  1. COLY-MYCIN M [Suspect]
     Indication: BACTERIAL INFECTION
     Dosage: 170000 IU/KG, DAILY (IN 3 DIVIDED DOSES), INTRAVENOUS
     Route: 042
  2. COLY-MYCIN M [Suspect]
     Indication: PATHOGEN RESISTANCE
     Dosage: 170000 IU/KG, DAILY (IN 3 DIVIDED DOSES), INTRAVENOUS
     Route: 042
  3. TEICOPLANIN (TEICOPLANIN) [Concomitant]
  4. PIPERACILLIN W/TAZOBACTAM (PIPERACILLIN, TAZOBACTAM) [Concomitant]
  5. CEFOXITIN (CEFOXITIN) [Concomitant]

REACTIONS (1)
  - MULTI-ORGAN FAILURE [None]
